FAERS Safety Report 23339016 (Version 4)
Quarter: 2024Q2

REPORT INFORMATION
  Report Type: Spontaneous
  Country: MX (occurrence: None)
  Receive Date: 20231226
  Receipt Date: 20240522
  Transmission Date: 20240715
  Serious: Yes (Hospitalization, Other)
  Sender: FDA-Public Use
  Company Number: 2023A274884

PATIENT
  Age: 27088 Day
  Sex: Female
  Weight: 45 kg

DRUGS (1)
  1. FASLODEX [Suspect]
     Active Substance: FULVESTRANT
     Indication: Breast cancer
     Route: 030
     Dates: start: 20231117, end: 20231117

REACTIONS (16)
  - Pneumonia [Recovered/Resolved]
  - Lung disorder [Recovering/Resolving]
  - Pain [Recovering/Resolving]
  - Oxygen saturation decreased [Recovered/Resolved with Sequelae]
  - Herpes zoster [Recovering/Resolving]
  - Lacrimation increased [Recovered/Resolved]
  - Rhinorrhoea [Recovering/Resolving]
  - Headache [Recovering/Resolving]
  - Secretion discharge [Recovered/Resolved]
  - Sleep disorder due to general medical condition, insomnia type [Not Recovered/Not Resolved]
  - Hyperhidrosis [Recovered/Resolved]
  - Cough [Recovered/Resolved]
  - Irritability [Recovering/Resolving]
  - Pain of skin [Recovering/Resolving]
  - Abdominal pain [Not Recovered/Not Resolved]
  - Injury [Recovering/Resolving]

NARRATIVE: CASE EVENT DATE: 20231117
